FAERS Safety Report 8333556 (Version 2)
Quarter: 2013Q2

REPORT INFORMATION
  Report Type: Spontaneous
  Country: US (occurrence: None)
  Receive Date: 20111130
  Receipt Date: 20120531
  Transmission Date: 20140414
  Serious: Yes (Hospitalization, Other)
  Sender: FDA-Public Use
  Company Number: US201108001110

PATIENT
  Age: 52 Year
  Sex: Female
  Weight: 81.6 kg

DRUGS (12)
  1. BYETTA [Suspect]
     Indication: PRODUCT USED FOR UNKNOWN INDICATION
     Dosage: Q0 UG, BID
     Dates: start: 200902
  2. METFORMIN HYDROCHLORIDE [Concomitant]
  3. CYMBALTA [Concomitant]
  4. DIFLUNISAL [Concomitant]
  5. FEXOFENADINE [Concomitant]
  6. PEPCID [Concomitant]
  7. GLYBURIDE (GLIBENCLAMIDE) [Concomitant]
  8. ESTROPIPATE [Concomitant]
  9. ALBUTEROL (SALBUTAMOL) [Concomitant]
  10. CEFROXADINE [Concomitant]
  11. SKELAXIN [Concomitant]
  12. TYLENOL (PARACETAMOL) [Concomitant]

REACTIONS (3)
  - RENAL FAILURE [None]
  - PANCREATITIS [None]
  - BLOOD GLUCOSE INCREASED [None]
